FAERS Safety Report 8501271-2 (Version None)
Quarter: 2012Q3

REPORT INFORMATION
  Report Type: 
  Country: None (occurrence: None)
  Receive Date: 20120710
  Receipt Date: 20120702
  Transmission Date: 20120928
  Serious: Yes (Other)
  Sender: FDA-Public Use
  Company Number: US-FRI-1000036798

PATIENT
  Sex: Female
  Weight: 76.3 kg

DRUGS (1)
  1. DALIRESP [Suspect]
     Indication: RESPIRATORY DISORDER
     Dosage: 500 MCG
     Dates: start: 20120314, end: 20120325

REACTIONS (7)
  - DIARRHOEA [None]
  - ABDOMINAL PAIN UPPER [None]
  - OFF LABEL USE [None]
  - INSOMNIA [None]
  - PRURITUS [None]
  - BACK PAIN [None]
  - MICTURITION DISORDER [None]
